FAERS Safety Report 9364836 (Version 1)
Quarter: 2013Q2

REPORT INFORMATION
  Report Type: Spontaneous
  Country: US (occurrence: US)
  Receive Date: 20130624
  Receipt Date: 20130624
  Transmission Date: 20140414
  Serious: Yes (Hospitalization)
  Sender: FDA-Public Use
  Company Number: US-GLAXOSMITHKLINE-A0837858A

PATIENT
  Age: 63 Year
  Sex: Male

DRUGS (3)
  1. AVANDIA [Suspect]
     Indication: DIABETES MELLITUS
     Dosage: 8MG PER DAY
     Route: 048
     Dates: start: 20030701, end: 20060820
  2. GLUCOTROL [Concomitant]
  3. LISINOPRIL [Concomitant]

REACTIONS (3)
  - Cardiac disorder [Recovering/Resolving]
  - Atrioventricular block complete [Unknown]
  - Syncope [Unknown]
